FAERS Safety Report 14120180 (Version 1)
Quarter: 2017Q4

REPORT INFORMATION
  Report Type: Spontaneous
  Country: FR (occurrence: FR)
  Receive Date: 20171024
  Receipt Date: 20171024
  Transmission Date: 20180321
  Serious: Yes (Other)
  Sender: FDA-Public Use
  Company Number: FR-MERCK KGAA-2031268

PATIENT
  Age: 43 Year
  Sex: Female

DRUGS (1)
  1. NOVOTHYROX [Suspect]
     Active Substance: LEVOTHYROXINE SODIUM
     Indication: THYROIDECTOMY
     Route: 048
     Dates: start: 20170403, end: 20170817

REACTIONS (7)
  - Weight decreased [Unknown]
  - Blood thyroid stimulating hormone decreased [Unknown]
  - Mood swings [Unknown]
  - Fatigue [Unknown]
  - Nausea [Unknown]
  - Tachycardia [Unknown]
  - Arthropathy [Unknown]

NARRATIVE: CASE EVENT DATE: 20170501
